FAERS Safety Report 20765847 (Version 2)
Quarter: 2022Q2

REPORT INFORMATION
  Report Type: Spontaneous
  Country: US (occurrence: US)
  Receive Date: 20220428
  Receipt Date: 20220622
  Transmission Date: 20220721
  Serious: Yes (Other)
  Sender: FDA-Public Use
  Company Number: US-PFIZER INC-202200390179

PATIENT
  Age: 65 Year
  Sex: Female

DRUGS (2)
  1. IBRANCE [Suspect]
     Active Substance: PALBOCICLIB
     Dosage: UNK
  2. LETROZOLE [Concomitant]
     Active Substance: LETROZOLE
     Dosage: UNK

REACTIONS (7)
  - Back disorder [Recovering/Resolving]
  - Loss of consciousness [Unknown]
  - Product dose omission issue [Unknown]
  - Neoplasm progression [Unknown]
  - Memory impairment [Unknown]
  - Somnolence [Unknown]
  - Fatigue [Unknown]
